FAERS Safety Report 26093798 (Version 1)
Quarter: 2025Q4

REPORT INFORMATION
  Report Type: Spontaneous
  Country: EU (occurrence: EU)
  Receive Date: 20251126
  Receipt Date: 20251126
  Transmission Date: 20260118
  Serious: Yes (Other)
  Sender: EISAI
  Company Number: EU-Eisai-EC-2025-199564

PATIENT
  Age: 61 Year
  Sex: Female

DRUGS (2)
  1. LENVATINIB [Suspect]
     Active Substance: LENVATINIB
     Indication: Endometrial cancer
     Route: 048
     Dates: start: 20250401
  2. PEMBROLIZUMAB [Suspect]
     Active Substance: PEMBROLIZUMAB
     Indication: Endometrial cancer
     Route: 041
     Dates: start: 20250401

REACTIONS (3)
  - Glucocorticoid deficiency [Unknown]
  - Mucosal inflammation [Unknown]
  - Gingivitis [Unknown]

NARRATIVE: CASE EVENT DATE: 20250101
